FAERS Safety Report 10909466 (Version 1)
Quarter: 2015Q1

REPORT INFORMATION
  Report Type: Spontaneous
  Country: US (occurrence: US)
  Receive Date: 20150312
  Receipt Date: 20150312
  Transmission Date: 20150721
  Serious: No
  Sender: FDA-Public Use
  Company Number: US-SA-2014SA056148

PATIENT
  Age: 90 Year
  Sex: Female
  Weight: 56.24 kg

DRUGS (3)
  1. NASACORT AQ [Suspect]
     Active Substance: TRIAMCINOLONE ACETONIDE
     Indication: HYPERSENSITIVITY
     Dosage: DOSE: ONE SPRAY EACH NOSTRILS.
     Route: 065
     Dates: start: 201404, end: 20140430
  2. NASACORT AQ [Suspect]
     Active Substance: TRIAMCINOLONE ACETONIDE
     Indication: UPPER-AIRWAY COUGH SYNDROME
     Dosage: DOSE: ONE SPRAY EACH NOSTRILS.
     Route: 065
     Dates: start: 201404, end: 20140430
  3. LEVOTHYROXINE [Concomitant]
     Active Substance: LEVOTHYROXINE
     Indication: HYPOTHYROIDISM
     Route: 065

REACTIONS (1)
  - Drug ineffective [Unknown]
